FAERS Safety Report 21978698 (Version 1)
Quarter: 2023Q1

REPORT INFORMATION
  Report Type: Spontaneous
  Country: GB (occurrence: GB)
  Receive Date: 20230210
  Receipt Date: 20230210
  Transmission Date: 20230418
  Serious: Yes (Life-Threatening, Hospitalization, Other)
  Sender: FDA-Public Use
  Company Number: GB-MHRA-MED-202302060959413120-KFCMZ

PATIENT
  Age: 14 Year
  Sex: Female
  Weight: 44 kg

DRUGS (1)
  1. LAMOTRIGINE [Suspect]
     Active Substance: LAMOTRIGINE
     Indication: Juvenile myoclonic epilepsy
     Dosage: 100 MILLIGRAM, BID (100MG BD)
     Route: 065
     Dates: start: 20210610, end: 20230123

REACTIONS (10)
  - Medication error [Unknown]
  - Dyskinesia [Recovered/Resolved]
  - Past-pointing [Recovered/Resolved]
  - Mydriasis [Recovered/Resolved]
  - Dysarthria [Recovered/Resolved]
  - Vertigo [Recovered/Resolved]
  - Nystagmus [Recovered/Resolved]
  - Diplopia [Recovered/Resolved]
  - Ataxia [Recovered/Resolved]
  - Vomiting [Recovered/Resolved]

NARRATIVE: CASE EVENT DATE: 20210610
